FAERS Safety Report 25112419 (Version 1)
Quarter: 2025Q1

REPORT INFORMATION
  Report Type: Spontaneous
  Country: US (occurrence: US)
  Receive Date: 20250324
  Receipt Date: 20250324
  Transmission Date: 20250409
  Serious: No
  Sender: UCB
  Company Number: US-UCBSA-2024065775

PATIENT
  Age: 27 Year
  Sex: Female

DRUGS (1)
  1. BRIVIACT [Suspect]
     Active Substance: BRIVARACETAM
     Indication: Product used for unknown indication
     Dates: start: 2022, end: 2024

REACTIONS (4)
  - Aggression [Unknown]
  - Agitation [Unknown]
  - Weight decreased [Unknown]
  - Therapeutic response shortened [Unknown]
